FAERS Safety Report 9415306 (Version 1)
Quarter: 2013Q3

REPORT INFORMATION
  Report Type: Spontaneous
  Country: US (occurrence: US)
  Receive Date: 20130723
  Receipt Date: 20130723
  Transmission Date: 20140515
  Serious: Yes (Death, Other)
  Sender: FDA-Public Use
  Company Number: US-PFIZER INC-2013210600

PATIENT
  Age: 72 Year
  Sex: Female

DRUGS (1)
  1. LEVOTHYROXINE SODIUM [Suspect]
     Indication: HYPOTHYROIDISM
     Dosage: 200 UG, DAILY (TAKING 3 TO 6 TABLETS DAILY)

REACTIONS (5)
  - Sudden death [Fatal]
  - Ventricular fibrillation [Fatal]
  - Hyperthyroidism [Unknown]
  - Sinus tachycardia [Unknown]
  - Weight decreased [Unknown]
